FAERS Safety Report 5503643-7 (Version None)
Quarter: 2007Q4

REPORT INFORMATION
  Report Type: 
  Country: None (occurrence: None)
  Receive Date: 20071101
  Receipt Date: 20071024
  Transmission Date: 20080405
  Serious: Yes (Other)
  Sender: FDA-Public Use
  Company Number: PHRM2007FR02468

PATIENT
  Age: 59 Year
  Sex: Female

DRUGS (3)
  1. URBANYL [Concomitant]
  2. TEMESTA [Concomitant]
  3. TRASICOR [Suspect]
     Indication: HYPERTENSION
     Dosage: 80 MG, BID
     Route: 048
     Dates: start: 19750101

REACTIONS (1)
  - HYPERTHYROIDISM [None]
